FAERS Safety Report 9628743 (Version 4)
Quarter: 2014Q1

REPORT INFORMATION
  Report Type: Spontaneous
  Country: JP (occurrence: JP)
  Receive Date: 20131017
  Receipt Date: 20140310
  Transmission Date: 20141002
  Serious: Yes (Hospitalization)
  Sender: FDA-Public Use
  Company Number: JP-AMGEN-JPNSP2013073281

PATIENT
  Age: 69 Year
  Sex: Male
  Weight: 68 kg

DRUGS (11)
  1. RANMARK [Suspect]
     Indication: BONE NEOPLASM
     Dosage: 120 MG, UNK
     Route: 058
     Dates: start: 20120903, end: 20130514
  2. RANMARK [Suspect]
     Indication: LUNG NEOPLASM MALIGNANT
  3. AVASTIN                            /01555201/ [Concomitant]
     Indication: LUNG ADENOCARCINOMA
     Route: 041
     Dates: start: 20120723, end: 20130514
  4. ALIMTA [Concomitant]
     Indication: LUNG ADENOCARCINOMA
     Route: 041
     Dates: start: 20120723, end: 20130610
  5. OLMETEC [Concomitant]
     Indication: HYPERTENSION
     Route: 048
     Dates: start: 201206
  6. ADALAT [Concomitant]
     Indication: HYPERTENSION
     Route: 048
     Dates: start: 201206
  7. GLIMEPIRIDE [Concomitant]
     Indication: DIABETES MELLITUS
     Route: 048
     Dates: start: 201206
  8. ASPARA-CA [Concomitant]
     Indication: BONE NEOPLASM
     Dosage: UNKNOWN
     Route: 065
     Dates: start: 20120903, end: 20130514
  9. CALFINA [Concomitant]
     Indication: BONE NEOPLASM
     Dosage: UNKNOWN
     Route: 065
     Dates: start: 20120903, end: 20130514
  10. PANVITAN                           /07504101/ [Concomitant]
     Indication: LUNG ADENOCARCINOMA
     Dosage: UNKNOWN
     Route: 065
     Dates: start: 20120723, end: 201307
  11. FAMOGAST [Concomitant]
     Indication: GASTRITIS
     Dosage: UNKNOWN
     Route: 065
     Dates: start: 201206

REACTIONS (1)
  - Osteonecrosis of jaw [Not Recovered/Not Resolved]
